FAERS Safety Report 4663997-0 (Version None)
Quarter: 2005Q2

REPORT INFORMATION
  Report Type: 
  Country: None (occurrence: None)
  Receive Date: 20050516
  Receipt Date: 20050516
  Transmission Date: 20051028
  Serious: Yes (Hospitalization)
  Sender: FDA-Public Use
  Company Number: None

PATIENT
  Age: 57 Year
  Sex: Male

DRUGS (9)
  1. AMIODARONE [Suspect]
     Indication: ARRHYTHMIA
     Dosage: ORAL;200.0 MILLIGRAM
     Route: 048
     Dates: start: 20050411, end: 20050425
  2. GATIFLOXACIN [Suspect]
     Indication: MEDIASTINITIS
     Dosage: ORAL 400.0 MILLIGRAMS
     Route: 048
     Dates: start: 20050420, end: 20050425
  3. CORDARONE [Suspect]
     Indication: ARRHYTHMIA
     Dosage: ORAL; 200.0 MILLIGRAM
     Route: 048
     Dates: start: 20050411, end: 20050425
  4. TEQUIN [Suspect]
     Indication: MEDIASTINITIS
     Dosage: ORAL; 400.0 MILLIGRAM
     Route: 048
     Dates: start: 20050420, end: 20050425
  5. SIMVASTATIN [Concomitant]
  6. RABEPRAZOLE SODIUM [Concomitant]
  7. COLACE [Concomitant]
  8. ASPIRIN [Concomitant]
  9. TAMSULOSIN [Concomitant]

REACTIONS (7)
  - ATRIAL FLUTTER [None]
  - COUGH [None]
  - DRUG PRESCRIBING ERROR [None]
  - INCREASED UPPER AIRWAY SECRETION [None]
  - INTERNATIONAL NORMALISED RATIO INCREASED [None]
  - NAUSEA [None]
  - VOMITING [None]
